APPROVED DRUG PRODUCT: AQUASOL A
Active Ingredient: VITAMIN A
Strength: 50,000USP UNITS
Dosage Form/Route: CAPSULE;ORAL
Application: A083080 | Product #001
Applicant: ASTRAZENECA LP
Approved: Approved Prior to Jan 1, 1982 | RLD: No | RS: No | Type: DISCN